FAERS Safety Report 11147148 (Version 3)
Quarter: 2015Q3

REPORT INFORMATION
  Report Type: Spontaneous
  Country: US (occurrence: US)
  Receive Date: 20150528
  Receipt Date: 20150928
  Transmission Date: 20151125
  Serious: Yes (Other)
  Sender: FDA-Public Use
  Company Number: US-GLAXOSMITHKLINE-US2015071930

PATIENT
  Age: 66 Year
  Sex: Male

DRUGS (5)
  1. ADVIL [Suspect]
     Active Substance: IBUPROFEN
     Indication: PAIN
     Dosage: 200 MG, BID
  2. ALLI [Suspect]
     Active Substance: ORLISTAT
     Dosage: UNK
     Dates: start: 201508
  3. ADVIL [Suspect]
     Active Substance: IBUPROFEN
     Dosage: 400 MG, QD
  4. ALLI [Suspect]
     Active Substance: ORLISTAT
     Indication: WEIGHT LOSS DIET
     Dosage: 60 MG, ONCE OR TWICE DAILY
     Route: 048
     Dates: start: 201503, end: 20150522
  5. ALEVE [Suspect]
     Active Substance: NAPROXEN SODIUM
     Indication: PAIN
     Dosage: 220 MG, BID OR TID

REACTIONS (5)
  - Gastric ulcer [Recovered/Resolved]
  - Facial bones fracture [Recovered/Resolved]
  - Abdominal pain upper [Not Recovered/Not Resolved]
  - Haematochezia [Recovered/Resolved]
  - Road traffic accident [Recovered/Resolved]

NARRATIVE: CASE EVENT DATE: 201411
